FAERS Safety Report 20212114 (Version 1)
Quarter: 2021Q4

REPORT INFORMATION
  Report Type: Spontaneous
  Country: US (occurrence: US)
  Receive Date: 20211221
  Receipt Date: 20211221
  Transmission Date: 20220303
  Serious: No
  Sender: FDA-Public Use
  Company Number: US-ACORDA-ACO_170799_2021

PATIENT
  Sex: Female

DRUGS (2)
  1. INBRIJA [Suspect]
     Active Substance: LEVODOPA
     Indication: Parkinson^s disease
     Dosage: 84 MILLIGRAM, AS NEEDED; NOT TO EXCEED 5 DOSES PER DAY
     Dates: start: 20211102
  2. INBRIJA [Suspect]
     Active Substance: LEVODOPA
     Indication: On and off phenomenon

REACTIONS (6)
  - Throat irritation [Unknown]
  - Expired product administered [Unknown]
  - Product dispensing error [Unknown]
  - Mucosal discolouration [Not Recovered/Not Resolved]
  - Cough [Unknown]
  - Choking sensation [Unknown]
